FAERS Safety Report 4439598-6 (Version None)
Quarter: 2004Q3

REPORT INFORMATION
  Report Type: 
  Country: None (occurrence: None)
  Receive Date: 20040902
  Receipt Date: 20040817
  Transmission Date: 20050211
  Serious: Yes (Death, Hospitalization)
  Sender: FDA-Public Use
  Company Number: 200412566EU

PATIENT
  Age: 61 Year
  Sex: Male
  Weight: 70.5 kg

DRUGS (6)
  1. TAXOTERE [Suspect]
     Indication: HYPOPHARYNGEAL CANCER
     Route: 042
     Dates: start: 20040628, end: 20040809
  2. CISPLATIN [Suspect]
     Indication: HYPOPHARYNGEAL CANCER
     Route: 042
     Dates: start: 20040628, end: 20040809
  3. FLUOROURACIL [Suspect]
     Indication: HYPOPHARYNGEAL CANCER
     Route: 042
     Dates: start: 20040628, end: 20040809
  4. BAYCIP [Concomitant]
     Indication: PROPHYLAXIS
     Route: 048
     Dates: start: 20040628
  5. KETOROLAC TROMETHAMINE [Concomitant]
     Indication: PAIN
     Route: 048
     Dates: end: 20040814
  6. GABAPENTIN [Concomitant]
     Indication: NEUROPATHY
     Route: 048
     Dates: start: 20040809

REACTIONS (10)
  - ASPIRATION BRONCHIAL [None]
  - CONFUSIONAL STATE [None]
  - DEEP VEIN THROMBOSIS [None]
  - DYSPNOEA [None]
  - FEBRILE NEUTROPENIA [None]
  - NEUROPATHY [None]
  - RENAL FAILURE [None]
  - RESPIRATORY DISORDER [None]
  - RESPIRATORY FAILURE [None]
  - SOMNOLENCE [None]
